FAERS Safety Report 18876253 (Version 1)
Quarter: 2021Q1

REPORT INFORMATION
  Report Type: Spontaneous
  Country: DE (occurrence: DE)
  Receive Date: 20210211
  Receipt Date: 20210211
  Transmission Date: 20210420
  Serious: Yes (Other)
  Sender: FDA-Public Use
  Company Number: DE-AMGEN-DEUSP2021016462

PATIENT
  Age: 69 Year
  Sex: Female

DRUGS (1)
  1. PROLIA [Suspect]
     Active Substance: DENOSUMAB
     Indication: OSTEOPOROSIS
     Dosage: UNK
     Route: 065
     Dates: start: 2019

REACTIONS (8)
  - Confusional state [Unknown]
  - Arthralgia [Unknown]
  - Muscle twitching [Unknown]
  - Hypoaesthesia [Unknown]
  - Rash [Unknown]
  - Jaw disorder [Unknown]
  - Ear pain [Unknown]
  - Pain in extremity [Unknown]
